FAERS Safety Report 21284979 (Version 5)
Quarter: 2022Q4

REPORT INFORMATION
  Report Type: Report from Study
  Country: GB (occurrence: None)
  Receive Date: 20220902
  Receipt Date: 20221128
  Transmission Date: 20230112
  Serious: Yes (Hospitalization)
  Sender: FDA-Public Use
  Company Number: GB-ROCHE-3171294

PATIENT
  Age: 73 Year
  Sex: Male
  Weight: 121.3 kg

DRUGS (5)
  1. ALECTINIB [Suspect]
     Active Substance: ALECTINIB
     Indication: Non-small cell lung cancer
     Dosage: DATE OF LAST ADMINISTRATION PRIOR TO SAE: 13/SEP/2022, TOTAL DAILY DOSE PRIOR TO EVENT ONSET (MG): 1
     Route: 048
     Dates: start: 20210505
  2. APIXABAN [Concomitant]
     Active Substance: APIXABAN
     Indication: Atrial fibrillation
     Dosage: DATE OF LAST ADMINISTRATION PRIOR TO SAE: 16/AUG/2022
     Route: 048
     Dates: start: 20191123
  3. ATORVASTATIN [Concomitant]
     Active Substance: ATORVASTATIN
     Indication: Hypertension
     Dosage: DATE OF LAST ADMINISTRATION PRIOR TO SAE: 16/AUG/2022
     Route: 048
     Dates: start: 20191123
  4. BISOPROLOL [Concomitant]
     Active Substance: BISOPROLOL
     Indication: Hypertension
     Dosage: DATE OF LAST ADMINISTRATION PRIOR TO SAE: 16/AUG/2022
     Route: 048
     Dates: start: 20191123
  5. RAMIPRIL [Concomitant]
     Active Substance: RAMIPRIL
     Indication: Hypertension
     Dosage: DATE OF LAST ADMINISTRATION PRIOR TO SAE: 16/AUG/2022
     Route: 048
     Dates: start: 20191123

REACTIONS (3)
  - Urinary retention [Recovered/Resolved]
  - Haematuria [Not Recovered/Not Resolved]
  - COVID-19 [Recovered/Resolved]

NARRATIVE: CASE EVENT DATE: 20220816
